FAERS Safety Report 8640598 (Version 33)
Quarter: 2015Q4

REPORT INFORMATION
  Report Type: Report from Study
  Country: CA (occurrence: CA)
  Receive Date: 20120628
  Receipt Date: 20151214
  Transmission Date: 20160305
  Serious: Yes (Hospitalization, Other)
  Sender: FDA-Public Use
  Company Number: PHHY2009CA41678

PATIENT
  Age: 70 Year
  Sex: Male

DRUGS (13)
  1. SANDOSTATIN LAR DEPOT [Suspect]
     Active Substance: OCTREOTIDE ACETATE
     Dosage: 40 MG, QMO
     Route: 030
  2. COQ10 [Concomitant]
     Active Substance: UBIDECARENONE
     Indication: PRODUCT USED FOR UNKNOWN INDICATION
     Route: 065
  3. SANDOSTATIN LAR DEPOT [Suspect]
     Active Substance: OCTREOTIDE ACETATE
     Dosage: 40 MG, QMO
     Route: 030
  4. SANDOSTATIN LAR DEPOT [Suspect]
     Active Substance: OCTREOTIDE ACETATE
     Dosage: 60 MG, QMO
     Route: 030
  5. SANDOSTATIN LAR DEPOT [Suspect]
     Active Substance: OCTREOTIDE ACETATE
     Dosage: 20 MG, QMO (EVERY 4 WEEKS)
     Route: 030
  6. LOVASTATIN. [Concomitant]
     Active Substance: LOVASTATIN
     Indication: PRODUCT USED FOR UNKNOWN INDICATION
     Dosage: 40 MG, UNK
     Route: 065
  7. VITAMIN D [Concomitant]
     Active Substance: CHOLECALCIFEROL
     Indication: PRODUCT USED FOR UNKNOWN INDICATION
     Dosage: 2000 IU, UNK
     Route: 065
  8. LISINOPRIL. [Concomitant]
     Active Substance: LISINOPRIL
     Indication: PRODUCT USED FOR UNKNOWN INDICATION
     Dosage: 20 MG, QD
     Route: 065
  9. PANTOPRAZOLE [Concomitant]
     Active Substance: PANTOPRAZOLE SODIUM
     Indication: PRODUCT USED FOR UNKNOWN INDICATION
     Dosage: 40 MG, UNK
     Route: 065
  10. FISH OIL [Concomitant]
     Active Substance: FISH OIL
     Indication: PRODUCT USED FOR UNKNOWN INDICATION
     Route: 065
  11. CHROMIUM [Concomitant]
     Active Substance: CHROMIC CHLORIDE\CHROMIUM
     Indication: PRODUCT USED FOR UNKNOWN INDICATION
     Dosage: 500 UG, UNK
     Route: 065
  12. SANDOSTATIN LAR DEPOT [Suspect]
     Active Substance: OCTREOTIDE ACETATE
     Indication: METASTATIC CARCINOID TUMOUR
     Dosage: 30 MG, QMO
     Route: 030
     Dates: start: 20090316
  13. CENTRUM SILVER [Concomitant]
     Active Substance: MINERALS\VITAMINS
     Indication: PRODUCT USED FOR UNKNOWN INDICATION
     Route: 065

REACTIONS (35)
  - Headache [Unknown]
  - Abdominal adhesions [Unknown]
  - Hypertension [Unknown]
  - Haemoglobin decreased [Unknown]
  - Metastases to central nervous system [Unknown]
  - Nausea [Unknown]
  - General physical health deterioration [Unknown]
  - Intestinal obstruction [Unknown]
  - Abdominal pain [Recovering/Resolving]
  - Pulmonary cavitation [Unknown]
  - Neuralgia [Recovering/Resolving]
  - Back pain [Recovering/Resolving]
  - Neoplasm [Unknown]
  - Abdominal pain lower [Recovering/Resolving]
  - Hernia [Recovered/Resolved]
  - Heart rate decreased [Unknown]
  - Pain [Recovered/Resolved]
  - Blood pressure diastolic increased [Unknown]
  - Gastrointestinal wall thickening [Unknown]
  - Injection site pain [Recovering/Resolving]
  - Renal impairment [Unknown]
  - Malignant neoplasm progression [Unknown]
  - Chest pain [Recovered/Resolved]
  - Blood pressure systolic increased [Unknown]
  - Weight decreased [Unknown]
  - Vertigo [Recovered/Resolved]
  - Weight increased [Unknown]
  - Fall [Unknown]
  - Pericarditis [Unknown]
  - Sarcoidosis [Unknown]
  - Diarrhoea [Recovering/Resolving]
  - Chest pain [Recovered/Resolved]
  - Metastases to liver [Unknown]
  - Prostatic specific antigen increased [Unknown]
  - Skin exfoliation [Unknown]

NARRATIVE: CASE EVENT DATE: 2014
